FAERS Safety Report 5620244-0 (Version None)
Quarter: 2008Q1

REPORT INFORMATION
  Report Type: 
  Country: None (occurrence: None)
  Receive Date: 20080208
  Receipt Date: 20080205
  Transmission Date: 20080703
  Serious: Yes (Hospitalization)
  Sender: FDA-Public Use
  Company Number: B0498900A

PATIENT
  Age: 72 Year
  Sex: Female
  Weight: 51 kg

DRUGS (19)
  1. ARIXTRA [Suspect]
     Indication: THROMBOSIS PROPHYLAXIS
     Dosage: 1.5MG PER DAY
     Route: 058
     Dates: start: 20071115, end: 20071124
  2. LOXONIN [Concomitant]
     Indication: PAIN
     Dosage: 180MG PER DAY
     Route: 048
     Dates: start: 20071114
  3. MUCOSTA [Concomitant]
     Indication: PAIN
     Dosage: 300MG PER DAY
     Route: 048
     Dates: start: 20071114
  4. DASEN [Concomitant]
     Indication: PAIN
     Dosage: 30MG PER DAY
     Route: 048
     Dates: start: 20071114
  5. VOLTAREN [Concomitant]
     Indication: PAIN
     Route: 054
     Dates: start: 20071114
  6. FERO-GRADUMET [Concomitant]
     Dosage: 210MG PER DAY
     Route: 048
     Dates: start: 20071114, end: 20071129
  7. LENDORMIN [Concomitant]
     Indication: INSOMNIA
     Dosage: .25MG PER DAY
     Route: 048
     Dates: start: 20071114, end: 20071114
  8. PENTCILLIN [Concomitant]
     Indication: POSTOPERATIVE CARE
     Route: 042
     Dates: start: 20071113, end: 20071118
  9. ROPION [Concomitant]
     Route: 042
     Dates: start: 20071115
  10. FLOMOX [Concomitant]
     Indication: POSTOPERATIVE CARE
     Dosage: 300MG PER DAY
     Route: 048
     Dates: start: 20071119, end: 20071122
  11. ATROPINE [Concomitant]
     Indication: PREMEDICATION
     Dosage: .5MG PER DAY
     Route: 030
     Dates: start: 20071114, end: 20071114
  12. DORMICUM [Concomitant]
     Indication: PREMEDICATION
     Dosage: 2.5MG PER DAY
     Route: 030
     Dates: start: 20071114, end: 20071114
  13. BIKLIN [Concomitant]
     Indication: WOUND TREATMENT
     Dosage: 200MG PER DAY
     Dates: start: 20071114, end: 20071114
  14. LACTEC [Concomitant]
     Indication: FLUID REPLACEMENT
     Dosage: 500ML PER DAY
     Route: 042
     Dates: start: 20071114, end: 20071114
  15. PHYSIO 35 [Concomitant]
     Dosage: 1000ML PER DAY
     Route: 042
     Dates: start: 20071114, end: 20071114
  16. VEEN F [Concomitant]
     Dosage: 1000ML PER DAY
     Route: 042
     Dates: start: 20071114, end: 20071114
  17. PENTAZOCINE LACTATE [Concomitant]
     Indication: PAIN
     Dosage: 15MG PER DAY
     Route: 030
     Dates: start: 20071114, end: 20071114
  18. UNKNOWN [Concomitant]
     Dosage: 500ML PER DAY
     Route: 042
     Dates: start: 20071114, end: 20071114
  19. FLUMARIN [Concomitant]
     Indication: INFECTION
     Dosage: 1G TWICE PER DAY
     Dates: start: 20071122, end: 20071126

REACTIONS (6)
  - C-REACTIVE PROTEIN INCREASED [None]
  - INFLAMMATION [None]
  - POST PROCEDURAL HAEMATOMA [None]
  - POSTOPERATIVE WOUND COMPLICATION [None]
  - SUBCUTANEOUS HAEMATOMA [None]
  - WOUND COMPLICATION [None]
